FAERS Safety Report 13306035 (Version 3)
Quarter: 2017Q4

REPORT INFORMATION
  Report Type: Report from Study
  Country: CA (occurrence: CA)
  Receive Date: 20170308
  Receipt Date: 20171130
  Transmission Date: 20180320
  Serious: Yes (Other)
  Sender: FDA-Public Use
  Company Number: CA-IPSEN BIOPHARMACEUTICALS, INC.-2017-01767

PATIENT
  Age: 54 Year
  Sex: Female
  Weight: 74.85 kg

DRUGS (19)
  1. PMS VENLAFAXINE XR [Concomitant]
     Dosage: ONE IN THE MORNING, ONE AT DINNER
  2. TEVA-CLONIDINE [Concomitant]
     Dosage: TWO IN THE MORNING, ONE AT MIDDAY, TWO BEFORE SLEEP
  3. HYDROMORPH CONTIN [Concomitant]
     Active Substance: HYDROMORPHONE
     Dosage: ONE IN THE MORNING, ONE BEFORE DINNER, ONE BEFORE SLEEP
  4. HYDROMORPH CONTIN [Concomitant]
     Active Substance: HYDROMORPHONE
     Dosage: ONE IN THE MORNING, ONE BEFORE DINNER, ONE BEFORE SLEEP
  5. JAMP VITAMIN D [Concomitant]
  6. PMS-METFORMIN [Concomitant]
     Dosage: ONE HALF IN THE MORNING, ONE HALF BEFORE DINNER
  7. QUETIAPINE XR [Concomitant]
     Active Substance: QUETIAPINE
     Dosage: ONE IN THE MORNING, ONE BEFORE SLEEP
  8. SANDOZ BUPROPION SR [Concomitant]
     Active Substance: BUPROPION
     Dosage: ONE IN THE MORNING, ONE AT DINNER
  9. JAMP DOMPERIDONE [Concomitant]
     Dosage: ONE IN THE MORNING, ONE AT MIDDAY, ONE BEFORE DINNER
  10. QUETIAPINE XR [Concomitant]
     Active Substance: QUETIAPINE
     Dosage: ONE BEFORE SLEEP
  11. JAMP PANTOPRAZOLE [Concomitant]
     Dosage: ONE IN THE MORNING
  12. PMS PREGABALIN [Concomitant]
  13. PMS PREGABALIN [Concomitant]
     Dosage: ONE IN THE MORNING, ONE BEFORE SLEEP
  14. PMS-TRAZODONE [Concomitant]
  15. SOMATULINE AUTOGEL 120MG [Suspect]
     Active Substance: LANREOTIDE ACETATE
     Indication: NEUROENDOCRINE TUMOUR
     Dosage: 240 MG
     Route: 058
     Dates: start: 20160706, end: 20170719
  16. RESTORIL [Concomitant]
     Active Substance: TEMAZEPAM
     Dosage: ONE BEFORE SLEEP
  17. SOMATULINE AUTOGEL 120MG [Suspect]
     Active Substance: LANREOTIDE ACETATE
     Dosage: 120 MG
     Route: 058
     Dates: start: 20170719, end: 2017
  18. SOMATULINE AUTOGEL 120MG [Suspect]
     Active Substance: LANREOTIDE ACETATE
     Dosage: 240 MG
     Route: 058
     Dates: start: 2017
  19. JAMP SULFATE FERREUX [Concomitant]
     Dosage: ONE IN THE MORNING

REACTIONS (7)
  - Incorrect dose administered [Unknown]
  - Liver function test abnormal [Not Recovered/Not Resolved]
  - Inappropriate schedule of drug administration [Unknown]
  - Gastrooesophageal reflux disease [Not Recovered/Not Resolved]
  - Metastases to gastrointestinal tract [Not Recovered/Not Resolved]
  - Metastases to liver [Not Recovered/Not Resolved]
  - Metastasis [Not Recovered/Not Resolved]

NARRATIVE: CASE EVENT DATE: 20170221
